FAERS Safety Report 14514417 (Version 5)
Quarter: 2018Q2

REPORT INFORMATION
  Report Type: Spontaneous
  Country: FR (occurrence: FR)
  Receive Date: 20180209
  Receipt Date: 20180427
  Transmission Date: 20180711
  Serious: Yes (Death)
  Sender: FDA-Public Use
  Company Number: FR-BAYER-2018-020197

PATIENT
  Age: 79 Year
  Sex: Female
  Weight: 42 kg

DRUGS (8)
  1. DUPHALAC [Concomitant]
     Active Substance: LACTULOSE
     Dosage: UNK
  2. DIFFU K [Concomitant]
     Active Substance: POTASSIUM CHLORIDE
     Dosage: 600 G, BID
  3. ADEMPAS [Suspect]
     Active Substance: RIOCIGUAT
     Indication: PULMONARY HYPERTENSION
     Dosage: 1 MG, TID
  4. PREVISCAN (FLUINDIONE) [Concomitant]
     Active Substance: FLUINDIONE
     Dosage: 0.25 DF, HS
  5. ADEMPAS [Suspect]
     Active Substance: RIOCIGUAT
     Indication: PULMONARY HYPERTENSION
     Dosage: 0.5 MG, QD
  6. LEVOTHYROX [Concomitant]
     Active Substance: LEVOTHYROXINE
     Dosage: 125 ?G, OM
  7. ZYMADUO [Concomitant]
     Dosage: 10 DF, QD
  8. LASILIX [Concomitant]
     Active Substance: FUROSEMIDE
     Dosage: 80 MG, TID

REACTIONS (4)
  - Right ventricular failure [Fatal]
  - Product use in unapproved indication [None]
  - Labelled drug-disease interaction medication error [None]
  - Incorrect dose administered [None]

NARRATIVE: CASE EVENT DATE: 20151125
